FAERS Safety Report 18911069 (Version 1)
Quarter: 2021Q1

REPORT INFORMATION
  Report Type: Spontaneous
  Country: US (occurrence: US)
  Receive Date: 20210218
  Receipt Date: 20210218
  Transmission Date: 20210420
  Serious: No
  Sender: FDA-Public Use
  Company Number: US-PFIZER INC-2018354181

PATIENT
  Age: 51 Year
  Sex: Male

DRUGS (19)
  1. ALPRAZOLAM. [Concomitant]
     Active Substance: ALPRAZOLAM
     Dosage: 1 MG, 3X/DAY [1 MG 1 TABLET ORALLY 3 TIMES A DAY, 30 DAYS, 90 TABLET, REFILLS: 0]
     Route: 048
  2. PREDNISONE. [Concomitant]
     Active Substance: PREDNISONE
     Dosage: 5 MG, UNK (6 TABS DAY 1, 5 TABS DAY 2, 4 TABS DAY 3, 3 TABS DAY 4, 2 TABS DAY 5, 1 TAB DAY 6 ORALLY)
     Route: 048
  3. PROVENTIL HFA [Concomitant]
     Active Substance: ALBUTEROL SULFATE
     Dosage: UNK, AS NEEDED [108 (90 BASE) MCG/ACT 2 PUFFS AS NEEDED INHALATION EVERY 4 HRS, 30 DAYS, 1 INHALERS]
     Route: 055
  4. TRIAMCINOLONE ACETONIDE. [Concomitant]
     Active Substance: TRIAMCINOLONE ACETONIDE
     Dosage: UNK, 2X/DAY [APPLICATION TO AFFECTED AREA EXTERNALLY]
     Route: 061
  5. SYMBICORT [Concomitant]
     Active Substance: BUDESONIDE\FORMOTEROL FUMARATE DIHYDRATE
     Dosage: UNK, 2X/DAY (160?4.5 MCG/ACT 2PUFFS INHALATION TWICE A DAY, 30 DAYS, 1 BOX)
     Route: 055
  6. TYLENOL [Concomitant]
     Active Substance: ACETAMINOPHEN
     Dosage: 325 MG, AS NEEDED
     Route: 048
  7. MORPHINE SULFATE. [Concomitant]
     Active Substance: MORPHINE SULFATE
     Dosage: 30 MG, AS NEEDED [1 TABLET AS NEEDED ORALLY EVERY 4?6 HRS PRN, 30 DAYS, 120, REFILLS: 0]
     Route: 048
  8. LYRICA [Suspect]
     Active Substance: PREGABALIN
     Indication: NEUROPATHY PERIPHERAL
     Dosage: 150 MG, 3X/DAY
     Route: 048
  9. ZORVOLEX [Concomitant]
     Active Substance: DICLOFENAC
     Dosage: 35 MG, 3X/DAY
     Route: 048
  10. ALBUTEROL SULFATE. [Concomitant]
     Active Substance: ALBUTEROL SULFATE
     Dosage: UNK, AS NEEDED [USE ONE VIAL IN NEBULIZER 4 TIMES DAILY AS NEEDED, 225 UNSPECIFIED, REFILLS: 0]
  11. GOLYTELY [Concomitant]
     Active Substance: POLYETHYLENE GLYCOL 3350\POTASSIUM CHLORIDE\SODIUM BICARBONATE\SODIUM CHLORIDE\SODIUM SULFATE
     Dosage: 236 G, UNK [236 GM AS DIRECTED ORALLY AS DIRECTED]
     Route: 048
  12. POTASSIUM [Concomitant]
     Active Substance: POTASSIUM
     Dosage: UNK
  13. CYCLOBENZAPRINE HCL [Concomitant]
     Active Substance: CYCLOBENZAPRINE HYDROCHLORIDE
     Dosage: 10 MG, 3X/DAY
     Route: 048
  14. CYMBALTA [Concomitant]
     Active Substance: DULOXETINE HYDROCHLORIDE
     Dosage: 60 MG, 1X/DAY
     Route: 048
  15. NORCO [Concomitant]
     Active Substance: ACETAMINOPHEN\HYDROCODONE BITARTRATE
     Dosage: UNK, AS NEEDED [HYDROCODONE BITARTRATE:10MG/PARACETAMOL:325MG
     Route: 048
  16. MONTELUKAST SODIUM. [Concomitant]
     Active Substance: MONTELUKAST SODIUM
     Dosage: 10 MG, 1X/DAY [10MG 1 TABLET IN THE EVENING ORALLY ONCE A DAY, 30 DAY(S), 30, REFILLS: 11]
     Route: 048
  17. DICLOFENAC SODIUM. [Concomitant]
     Active Substance: DICLOFENAC SODIUM
     Dosage: 50 MG, 3X/DAY
     Route: 048
  18. LYRICA [Suspect]
     Active Substance: PREGABALIN
     Indication: PAIN
     Dosage: 150 MG, 2X/DAY [1 CAPSULE TWICE A DAY 90 DAYS]
     Route: 048
  19. ALBUTEROL SULFATE. [Concomitant]
     Active Substance: ALBUTEROL SULFATE
     Dosage: UNK, AS NEEDED [(2.5 MG/3 ML) 0.083% 3 ML INHALATION QID PRN, 30 DAYS, 270 MILLILITER]
     Route: 055

REACTIONS (2)
  - Pain [Unknown]
  - Extra dose administered [Unknown]
